FAERS Safety Report 12807956 (Version 2)
Quarter: 2017Q1

REPORT INFORMATION
  Report Type: Spontaneous
  Country: IT (occurrence: IT)
  Receive Date: 20161004
  Receipt Date: 20170111
  Transmission Date: 20170428
  Serious: Yes (Hospitalization)
  Sender: FDA-Public Use
  Company Number: IT-PFIZER INC-2016457529

PATIENT
  Age: 44 Year
  Sex: Female

DRUGS (3)
  1. SERTRALINE HCL [Suspect]
     Active Substance: SERTRALINE HYDROCHLORIDE
     Dosage: 15 DF, TOTAL
     Route: 030
     Dates: start: 20150618, end: 20150618
  2. DAPAROX /00830802/ [Suspect]
     Active Substance: PAROXETINE HYDROCHLORIDE
     Dosage: 56 DF, TOTAL
     Route: 048
     Dates: start: 20150618, end: 20150618
  3. QUENTIAX [Suspect]
     Active Substance: QUETIAPINE FUMARATE
     Dosage: 10 DF, TOTAL
     Route: 048
     Dates: start: 20150618, end: 20150618

REACTIONS (4)
  - Somnolence [Recovered/Resolved]
  - Suicide attempt [Recovered/Resolved]
  - Flank pain [Recovered/Resolved]
  - Overdose [Recovered/Resolved]

NARRATIVE: CASE EVENT DATE: 20150618
